FAERS Safety Report 11298675 (Version 1)
Quarter: 2015Q3

REPORT INFORMATION
  Report Type: Spontaneous
  Country: US (occurrence: US)
  Receive Date: 20150722
  Receipt Date: 20150722
  Transmission Date: 20151125
  Serious: Yes (Hospitalization, Other)
  Sender: FDA-Public Use
  Company Number: US-ELI_LILLY_AND_COMPANY-US201202007623

PATIENT
  Sex: Female

DRUGS (2)
  1. REOPRO [Concomitant]
     Active Substance: ABCIXIMAB
     Indication: PERCUTANEOUS CORONARY INTERVENTION
  2. EFFIENT [Suspect]
     Active Substance: PRASUGREL HYDROCHLORIDE
     Indication: PERCUTANEOUS CORONARY INTERVENTION

REACTIONS (1)
  - Thrombocytopenia [Recovering/Resolving]
